FAERS Safety Report 10434602 (Version 3)
Quarter: 2014Q3

REPORT INFORMATION
  Report Type: Spontaneous
  Country: JP (occurrence: JP)
  Receive Date: 20140905
  Receipt Date: 20140926
  Transmission Date: 20150326
  Serious: Yes (Other)
  Sender: FDA-Public Use
  Company Number: JP-ASTRAZENECA-2014SE65633

PATIENT
  Age: 58 Year
  Sex: Female

DRUGS (5)
  1. ROCEPHIN [Concomitant]
     Active Substance: CEFTRIAXONE SODIUM
     Indication: FEBRILE NEUTROPENIA
     Dates: start: 20140725, end: 20140728
  2. DAIKENCHUTO [Concomitant]
     Active Substance: HERBALS
     Route: 048
  3. MEROPEN [Suspect]
     Active Substance: MEROPENEM
     Indication: FEBRILE NEUTROPENIA
     Route: 042
     Dates: start: 20140728, end: 20140731
  4. MAGLAX [Concomitant]
     Active Substance: MAGNESIUM OXIDE
     Route: 048
     Dates: start: 20140714
  5. GRAN [Concomitant]
     Active Substance: FILGRASTIM
     Dates: start: 20140728, end: 20140803

REACTIONS (2)
  - Liver function test abnormal [Recovered/Resolved]
  - Hepatic function abnormal [Recovered/Resolved]

NARRATIVE: CASE EVENT DATE: 20140730
